FAERS Safety Report 4302610-9 (Version None)
Quarter: 2004Q1

REPORT INFORMATION
  Report Type: 
  Country: None (occurrence: None)
  Receive Date: 20040220
  Receipt Date: 20040217
  Transmission Date: 20041129
  Serious: Yes (Hospitalization)
  Sender: FDA-Public Use
  Company Number: TPG2003A00350

PATIENT
  Age: 62 Year
  Sex: Female

DRUGS (2)
  1. LANSOPRAZOLE [Suspect]
     Indication: REFLUX OESOPHAGITIS
     Dosage: 15 MG (15 MG, 1 IN 1 D), PER ORAL
     Route: 048
     Dates: start: 20020903
  2. ATACAND (CANDESARTAN CILEXETIL) (8 MILLIGRAM, TABLETS) [Concomitant]

REACTIONS (7)
  - BRAIN SCAN ABNORMAL [None]
  - BRAIN STEM ISCHAEMIA [None]
  - CEREBELLAR SYNDROME [None]
  - DIPLOPIA [None]
  - DYSARTHRIA [None]
  - MYASTHENIC SYNDROME [None]
  - TONGUE DISORDER [None]
